FAERS Safety Report 8403267-8 (Version None)
Quarter: 2012Q2

REPORT INFORMATION
  Report Type: 
  Country: None (occurrence: None)
  Receive Date: 20120601
  Receipt Date: 20120524
  Transmission Date: 20120825
  Serious: Yes (Hospitalization, Other)
  Sender: FDA-Public Use
  Company Number: US-MERCK-1110USA03838

PATIENT
  Age: 70 Year
  Sex: Male
  Weight: 85 kg

DRUGS (6)
  1. FOSAMAX PLUS D [Suspect]
     Route: 048
  2. MULTI-VITAMINS [Concomitant]
     Route: 065
     Dates: start: 20000101, end: 20110101
  3. FOSAMAX [Suspect]
     Indication: JOINT INSTABILITY
     Route: 048
     Dates: start: 20020101, end: 20080201
  4. FOSAMAX [Suspect]
     Route: 048
  5. FOSAMAX [Suspect]
     Indication: OSTEOPOROSIS
     Route: 048
     Dates: start: 20020101, end: 20080201
  6. FOSAMAX [Suspect]
     Route: 048
     Dates: start: 20080201, end: 20101001

REACTIONS (51)
  - PROSTATE CANCER [None]
  - PNEUMONIA [None]
  - SPINAL COLUMN STENOSIS [None]
  - UPPER LIMB FRACTURE [None]
  - ATRIAL FIBRILLATION [None]
  - THROMBOCYTOPENIA [None]
  - MACULAR FIBROSIS [None]
  - ECG SIGNS OF MYOCARDIAL ISCHAEMIA [None]
  - HYPERTENSIVE HEART DISEASE [None]
  - HAND FRACTURE [None]
  - FEMUR FRACTURE [None]
  - ASTHMA [None]
  - CARDIAC FAILURE CONGESTIVE [None]
  - EPISTAXIS [None]
  - SPINAL OSTEOARTHRITIS [None]
  - MUSCLE SPASMS [None]
  - NEPHROLITHIASIS [None]
  - INTERVERTEBRAL DISC PROTRUSION [None]
  - HYPOTENSION [None]
  - BRADYCARDIA [None]
  - ARTHRALGIA [None]
  - FALL [None]
  - CORONARY ARTERY DISEASE [None]
  - TOOTH FRACTURE [None]
  - VENTRICULAR EXTRASYSTOLES [None]
  - PALLOR [None]
  - MYALGIA [None]
  - BALANCE DISORDER [None]
  - LIMB INJURY [None]
  - CYSTOID MACULAR OEDEMA [None]
  - BACK PAIN [None]
  - CATARACT [None]
  - CONVULSION [None]
  - GAIT DISTURBANCE [None]
  - PERIODONTITIS [None]
  - LUMBAR RADICULOPATHY [None]
  - CALCULUS URETERIC [None]
  - HIP FRACTURE [None]
  - HYPERGLYCAEMIA [None]
  - AORTIC ARTERIOSCLEROSIS [None]
  - DENTAL CARIES [None]
  - OSTEOARTHRITIS [None]
  - PROTHROMBIN TIME PROLONGED [None]
  - SUPRAVENTRICULAR EXTRASYSTOLES [None]
  - INTERNATIONAL NORMALISED RATIO INCREASED [None]
  - HOT FLUSH [None]
  - RENAL FAILURE [None]
  - TENDONITIS [None]
  - BENIGN PROSTATIC HYPERPLASIA [None]
  - TOOTHACHE [None]
  - RETINAL TEAR [None]
